FAERS Safety Report 18750069 (Version 1)
Quarter: 2021Q1

REPORT INFORMATION
  Report Type: Spontaneous
  Country: US (occurrence: US)
  Receive Date: 20210118
  Receipt Date: 20210118
  Transmission Date: 20210419
  Serious: Yes (Hospitalization, Other)
  Sender: FDA-Public Use
  Company Number: US-AUROBINDO-AUR-APL-2021-001645

PATIENT
  Age: 79 Year
  Sex: Female

DRUGS (5)
  1. METHOTREXATE. [Suspect]
     Active Substance: METHOTREXATE
     Indication: RHEUMATOID ARTHRITIS
     Dosage: 7.5 MILLIGRAM, EVERY WEEK
     Route: 065
  2. PREDNISONE. [Suspect]
     Active Substance: PREDNISONE
     Indication: RHEUMATOID ARTHRITIS
     Dosage: 3 MILLIGRAM, ONCE A DAY
     Route: 065
  3. METHYLPREDNISOLONE SODIUM SUCCINATE FOR INJECTION [Suspect]
     Active Substance: METHYLPREDNISOLONE SODIUM SUCCINATE
     Indication: LUMBAR SPINAL STENOSIS
     Dosage: 80 MILLIGRAM (2 TOTAL) ESI
     Route: 008
  4. ADALIMUMAB [Suspect]
     Active Substance: ADALIMUMAB
     Indication: RHEUMATOID ARTHRITIS
     Dosage: 40 MILLIGRAM (15 DAY) BIMONTHLY
     Route: 065
  5. NORMAL SALINE [Concomitant]
     Active Substance: SODIUM CHLORIDE
     Indication: PRODUCT USED FOR UNKNOWN INDICATION
     Dosage: 1 MILLILITER
     Route: 008

REACTIONS (4)
  - Inflammation [Unknown]
  - Spinal disorder [Unknown]
  - Paradoxical drug reaction [Unknown]
  - Myositis [Unknown]
